FAERS Safety Report 4441794-9 (Version None)
Quarter: 2004Q3

REPORT INFORMATION
  Report Type: 
  Country: None (occurrence: None)
  Receive Date: 20040907
  Receipt Date: 20040524
  Transmission Date: 20050211
  Serious: Yes (Life-Threatening, Hospitalization, Disabling, Other)
  Sender: FDA-Public Use
  Company Number: US-MERCK-0405USA02158

PATIENT
  Age: 40 Year
  Sex: Male
  Weight: 82 kg

DRUGS (1)
  1. VIOXX [Suspect]
     Indication: PAIN PROPHYLAXIS
     Route: 048
     Dates: start: 20040416, end: 20040416

REACTIONS (6)
  - ASPIRATION [None]
  - FOREIGN BODY ASPIRATION [None]
  - GASTROOESOPHAGEAL REFLUX DISEASE [None]
  - LUNG DISORDER [None]
  - LUNG INJURY [None]
  - VOMITING [None]
